FAERS Safety Report 6306925-4 (Version None)
Quarter: 2009Q3

REPORT INFORMATION
  Report Type: 
  Country: None (occurrence: None)
  Receive Date: 20090811
  Receipt Date: 20090811
  Transmission Date: 20100115
  Serious: Yes (Hospitalization, Other)
  Sender: FDA-Public Use
  Company Number: None

PATIENT
  Age: 22 Year
  Sex: Female
  Weight: 94.3482 kg

DRUGS (1)
  1. IMPLANON [Suspect]
     Indication: CONTRACEPTION
     Dosage: CONSTANT ONCE SUBDERMAL
     Route: 059
     Dates: start: 20090729, end: 20090804

REACTIONS (9)
  - ABDOMINAL PAIN UPPER [None]
  - AMBLYOPIA [None]
  - BACK PAIN [None]
  - DIZZINESS [None]
  - HEADACHE [None]
  - MIGRAINE [None]
  - NAUSEA [None]
  - NECK PAIN [None]
  - VOMITING [None]
